FAERS Safety Report 8602338 (Version 2)
Quarter: 2013Q2

REPORT INFORMATION
  Report Type: Spontaneous
  Country: US (occurrence: US)
  Receive Date: 20120607
  Receipt Date: 20130523
  Transmission Date: 20140414
  Serious: No
  Sender: FDA-Public Use
  Company Number: US-PFIZER INC-2012134528

PATIENT
  Age: 66 Year
  Sex: Female
  Weight: 62.59 kg

DRUGS (5)
  1. FLECTOR [Suspect]
     Indication: ARTHRALGIA
     Dosage: UNK, 2X/DAY
     Route: 062
     Dates: start: 201103
  2. FLECTOR [Suspect]
     Dosage: UNK
     Dates: start: 201103
  3. TRAMADOL HYDROCHLORIDE [Suspect]
     Indication: ARTHRITIS
     Dosage: 50 MG (EVERY 6 HOURS), 4X/DAY
     Dates: start: 20120101
  4. TRAMADOL HYDROCHLORIDE [Suspect]
     Indication: PIRIFORMIS SYNDROME
  5. NEXIUM [Concomitant]
     Indication: CROHN^S DISEASE
     Dosage: 20 MG, 2X/DAY

REACTIONS (3)
  - Haematocrit decreased [Unknown]
  - Haemoglobin decreased [Unknown]
  - Drug ineffective [Unknown]
